FAERS Safety Report 9472964 (Version 1)
Quarter: 2013Q3

REPORT INFORMATION
  Report Type: Spontaneous
  Country: US (occurrence: US)
  Receive Date: 20130823
  Receipt Date: 20130823
  Transmission Date: 20140515
  Serious: No
  Sender: FDA-Public Use
  Company Number: US-BRISTOL-MYERS SQUIBB COMPANY-17285636

PATIENT
  Sex: Female

DRUGS (5)
  1. SPRYCEL [Suspect]
     Indication: CHRONIC MYELOID LEUKAEMIA
     Dosage: TABS, FREQUENCY:TWICE DAILY ON 13SEP2012 AFTERWARDS 1 TABLET ON ONE DAY AND TWO TABLETS THE NEXT
     Dates: start: 20120913
  2. ALLOPURINOL [Concomitant]
  3. ACETAMINOPHEN [Concomitant]
  4. ALKA-SELTZER [Concomitant]
     Indication: NASOPHARYNGITIS
  5. BENADRYL [Concomitant]

REACTIONS (6)
  - Rash pruritic [Recovered/Resolved]
  - Headache [Not Recovered/Not Resolved]
  - Nausea [Unknown]
  - Alopecia [Unknown]
  - Arthralgia [Unknown]
  - Nasopharyngitis [Unknown]
